FAERS Safety Report 14492307 (Version 1)
Quarter: 2018Q1

REPORT INFORMATION
  Report Type: Spontaneous
  Country: US (occurrence: US)
  Receive Date: 20180205
  Receipt Date: 20180205
  Transmission Date: 20180509
  Serious: Yes (Hospitalization)
  Sender: FDA-Public Use
  Company Number: None

PATIENT
  Age: 64 Year
  Sex: Male

DRUGS (11)
  1. TYLENOL 8HR [Concomitant]
     Active Substance: ACETAMINOPHEN
  2. BACLOFEN. [Concomitant]
     Active Substance: BACLOFEN
  3. METHYLPHEND [Concomitant]
     Active Substance: METHYLPHENIDATE HYDROCHLORIDE
  4. TOPICORT [Concomitant]
     Active Substance: DESOXIMETASONE
  5. COSENTYX [Suspect]
     Active Substance: SECUKINUMAB
     Indication: PSORIASIS
     Route: 058
     Dates: start: 201609
  6. ANDROGEL [Concomitant]
     Active Substance: TESTOSTERONE
  7. GLIMEPIRIDE. [Concomitant]
     Active Substance: GLIMEPIRIDE
  8. LIDOCAINE. [Concomitant]
     Active Substance: LIDOCAINE
  9. VICODIN HP [Concomitant]
     Active Substance: ACETAMINOPHEN\HYDROCODONE BITARTRATE
  10. VERAPAMIL [Concomitant]
     Active Substance: VERAPAMIL HYDROCHLORIDE
  11. METFORMIN [Concomitant]
     Active Substance: METFORMIN HYDROCHLORIDE

REACTIONS (1)
  - Staphylococcal infection [None]

NARRATIVE: CASE EVENT DATE: 20171101
